FAERS Safety Report 11765902 (Version 4)
Quarter: 2016Q1

REPORT INFORMATION
  Report Type: Report from Study
  Country: US (occurrence: US)
  Receive Date: 20151122
  Receipt Date: 20160202
  Transmission Date: 20160525
  Serious: No
  Sender: FDA-Public Use
  Company Number: PHEH2015US023564

PATIENT
  Age: 80 Year
  Sex: Female

DRUGS (2)
  1. EXJADE [Suspect]
     Active Substance: DEFERASIROX
     Indication: MYELODYSPLASTIC SYNDROME
     Dosage: 500 MG, QD
     Route: 048
  2. EXJADE [Suspect]
     Active Substance: DEFERASIROX
     Dosage: 1000 MG, QD
     Route: 048

REACTIONS (4)
  - Haemoglobin decreased [Not Recovered/Not Resolved]
  - Dysgeusia [Unknown]
  - Platelet count decreased [Not Recovered/Not Resolved]
  - Fatigue [Not Recovered/Not Resolved]
